FAERS Safety Report 15755394 (Version 1)
Quarter: 2018Q4

REPORT INFORMATION
  Report Type: Spontaneous
  Country: US (occurrence: US)
  Receive Date: 20181206
  Receipt Date: 20181206
  Transmission Date: 20190205
  Serious: Yes (Other)
  Sender: FDA-Public Use
  Company Number: None

PATIENT
  Age: 21 Year
  Sex: Male
  Weight: 104.3 kg

DRUGS (13)
  1. PROPOFOL. [Concomitant]
     Active Substance: PROPOFOL
  2. SUGAMMADEX [Concomitant]
     Active Substance: SUGAMMADEX
  3. CLINDAMYCIN. [Concomitant]
     Active Substance: CLINDAMYCIN
  4. FENTANYL. [Concomitant]
     Active Substance: FENTANYL
  5. SEVOFLURANE. [Concomitant]
     Active Substance: SEVOFLURANE
  6. LACTATED RINGERS SOLUTION [Concomitant]
     Active Substance: CALCIUM CHLORIDE\POTASSIUM CHLORIDE\SODIUM CHLORIDE\SODIUM LACTATE
  7. ONDANSETRON [Concomitant]
     Active Substance: ONDANSETRON
  8. DEXMEDETOMIDINE. [Concomitant]
     Active Substance: DEXMEDETOMIDINE
  9. ROCURONIUM [Suspect]
     Active Substance: ROCURONIUM BROMIDE
     Indication: NEUROMUSCULAR BLOCKADE
     Route: 042
     Dates: start: 20181024, end: 20181024
  10. MIDAZOLAM [Concomitant]
     Active Substance: MIDAZOLAM HYDROCHLORIDE
  11. LIDOCAINE. [Concomitant]
     Active Substance: LIDOCAINE
  12. HYDROMORPHONE [Concomitant]
     Active Substance: HYDROMORPHONE
  13. DEXAMETHASONE. [Concomitant]
     Active Substance: DEXAMETHASONE

REACTIONS (1)
  - Drug effect decreased [None]

NARRATIVE: CASE EVENT DATE: 20181024
